FAERS Safety Report 8237507-5 (Version None)
Quarter: 2012Q1

REPORT INFORMATION
  Report Type: 
  Country: None (occurrence: None)
  Receive Date: 20120323
  Receipt Date: 20120314
  Transmission Date: 20120608
  Serious: No
  Sender: FDA-Public Use
  Company Number: AUR-APL-2012-01495

PATIENT
  Age: 40 Year
  Sex: Male

DRUGS (6)
  1. LAMIVUDINE [Suspect]
     Indication: ANTIRETROVIRAL THERAPY
     Dosage: UNKNOWN
  2. ISONIAZID [Suspect]
     Indication: PULMONARY TUBERCULOSIS
     Dosage: UNKNOWN
  3. STAVUDINE [Suspect]
     Indication: ANTIRETROVIRAL THERAPY
     Dosage: UNKNOWN
  4. ETHAMBUTOL HYDROCHLORIDE [Suspect]
     Indication: PULMONARY TUBERCULOSIS
     Dosage: UNKNOWN
  5. EFAVIRENZ [Suspect]
     Indication: ANTIRETROVIRAL THERAPY
     Dosage: UNKNOWN
  6. LEVOFLOXACIN [Suspect]
     Indication: PULMONARY TUBERCULOSIS
     Dosage: UNKNOWN

REACTIONS (5)
  - TUBULOINTERSTITIAL NEPHRITIS [None]
  - HIV ASSOCIATED NEPHROPATHY [None]
  - PROTEINURIA [None]
  - GINGIVAL BLEEDING [None]
  - RENAL VASCULITIS [None]
